FAERS Safety Report 4840503-9 (Version None)
Quarter: 2005Q4

REPORT INFORMATION
  Report Type: 
  Country: None (occurrence: None)
  Receive Date: 20051130
  Receipt Date: 20050825
  Transmission Date: 20060501
  Serious: No
  Sender: FDA-Public Use
  Company Number: US-BRISTOL-MYERS SQUIBB COMPANY-13090782

PATIENT
  Sex: Male

DRUGS (4)
  1. ERBITUX [Suspect]
     Indication: COLON CANCER
     Route: 042
     Dates: start: 20050818, end: 20050818
  2. DECADRON [Concomitant]
     Indication: PREMEDICATION
  3. ALOXI [Concomitant]
     Indication: PREMEDICATION
  4. CAMPTOSAR [Concomitant]

REACTIONS (1)
  - RASH [None]
